FAERS Safety Report 23842492 (Version 1)
Quarter: 2024Q2

REPORT INFORMATION
  Report Type: Spontaneous
  Country: ZA (occurrence: ZA)
  Receive Date: 20240510
  Receipt Date: 20240510
  Transmission Date: 20240716
  Serious: Yes (Hospitalization)
  Sender: FDA-Public Use
  Company Number: ZA-TEVA-VS-3194236

PATIENT
  Age: 75 Year
  Sex: Female
  Weight: 48.8 kg

DRUGS (6)
  1. CARBOPLATIN [Suspect]
     Active Substance: CARBOPLATIN
     Indication: Ovarian cancer
     Dosage: TIME INTERVAL: 0.33333333 WEEKS
     Route: 042
     Dates: start: 20240410
  2. PCH-Paclitaxel [Concomitant]
     Indication: Ovarian cancer
     Dosage: TIME INTERVAL: 0.33333333 WEEKS
     Route: 042
     Dates: start: 20240410
  3. Tramazac [Concomitant]
     Indication: Product used for unknown indication
  4. Eltrozin [Concomitant]
     Indication: Product used for unknown indication
  5. DULOXETINE HYDROCHLORIDE [Concomitant]
     Active Substance: DULOXETINE HYDROCHLORIDE
     Indication: Product used for unknown indication
  6. ECOTRIN [Concomitant]
     Active Substance: ASPIRIN
     Indication: Product used for unknown indication

REACTIONS (3)
  - Neutropenic sepsis [Not Recovered/Not Resolved]
  - Pleural effusion [Not Recovered/Not Resolved]
  - Pancytopenia [Not Recovered/Not Resolved]

NARRATIVE: CASE EVENT DATE: 20240417
